FAERS Safety Report 6506534-8 (Version None)
Quarter: 2009Q4

REPORT INFORMATION
  Report Type: 
  Country: None (occurrence: None)
  Receive Date: 20091221
  Receipt Date: 20091210
  Transmission Date: 20100525
  Serious: Yes (Disabling, Other)
  Sender: FDA-Public Use
  Company Number: GB-JNJFOC-20091203988

PATIENT
  Sex: Male
  Weight: 50 kg

DRUGS (7)
  1. REMICADE [Suspect]
     Indication: ANKYLOSING SPONDYLITIS
     Route: 042
     Dates: start: 20031203
  2. METHOTREXATE [Concomitant]
  3. CO-CODAMOL [Concomitant]
  4. FOLIC ACID [Concomitant]
  5. LANSOPRAZOLE [Concomitant]
  6. ROFECOXIB [Concomitant]
  7. VITAMIN B-12 [Concomitant]

REACTIONS (1)
  - THERMAL BURN [None]
